FAERS Safety Report 13497726 (Version 1)
Quarter: 2017Q2

REPORT INFORMATION
  Report Type: Spontaneous
  Country: IT (occurrence: IT)
  Receive Date: 20170428
  Receipt Date: 20170428
  Transmission Date: 20170830
  Serious: Yes (Hospitalization, Other)
  Sender: FDA-Public Use
  Company Number: IT-ELI_LILLY_AND_COMPANY-IT201704010060

PATIENT
  Age: 42 Year
  Sex: Female

DRUGS (1)
  1. HUMALOG [Suspect]
     Active Substance: INSULIN LISPRO
     Indication: DIABETES MELLITUS
     Dosage: UNK, UNKNOWN
     Route: 065
     Dates: start: 20170307

REACTIONS (12)
  - Fluid retention [Unknown]
  - Feeling abnormal [Unknown]
  - Viral upper respiratory tract infection [Unknown]
  - Paraesthesia [Unknown]
  - Incorrect drug administration duration [Unknown]
  - Chills [Unknown]
  - Pain in extremity [Unknown]
  - Oedema [Unknown]
  - Tachycardia [Unknown]
  - Peripheral swelling [Recovering/Resolving]
  - Abdominal distension [Recovering/Resolving]
  - Injury [Unknown]

NARRATIVE: CASE EVENT DATE: 20170317
